FAERS Safety Report 9300385 (Version 3)
Quarter: 2013Q3

REPORT INFORMATION
  Report Type: Spontaneous
  Country: US (occurrence: US)
  Receive Date: 20130521
  Receipt Date: 20130923
  Transmission Date: 20140515
  Serious: Yes (Other)
  Sender: FDA-Public Use
  Company Number: US-PFIZER INC-2013152536

PATIENT
  Age: 50 Year
  Sex: Male
  Weight: 86.2 kg

DRUGS (4)
  1. CELEBREX [Suspect]
     Indication: THROMBOANGIITIS OBLITERANS
     Dosage: 200 MG, 1X/DAY
     Dates: end: 20120606
  2. CELEBREX [Suspect]
     Indication: INFLAMMATION
  3. CELEBREX [Suspect]
     Indication: JOINT STIFFNESS
  4. VIAGRA [Suspect]
     Indication: CARDIOVASCULAR DISORDER
     Dosage: 100 MG, EVERY THREE DAYS

REACTIONS (4)
  - Off label use [Unknown]
  - Pulmonary hypertension [Unknown]
  - Hypertension [Unknown]
  - Renal failure chronic [Unknown]
